FAERS Safety Report 18972869 (Version 1)
Quarter: 2021Q1

REPORT INFORMATION
  Report Type: Spontaneous
  Country: US (occurrence: US)
  Receive Date: 20210305
  Receipt Date: 20210305
  Transmission Date: 20210420
  Serious: No
  Sender: FDA-Public Use
  Company Number: None

PATIENT
  Sex: Female

DRUGS (1)
  1. REBIF REBIDOSE [Suspect]
     Active Substance: INTERFERON BETA-1A
     Indication: MULTIPLE SCLEROSIS
     Dosage: ?          OTHER DOSE:44MCG/0.5ML;?
     Route: 058

REACTIONS (7)
  - Gastritis [None]
  - Dizziness [None]
  - Urticaria [None]
  - Multiple sclerosis relapse [None]
  - Gastrointestinal motility disorder [None]
  - Pruritus [None]
  - Burning sensation [None]
